FAERS Safety Report 10444552 (Version 1)
Quarter: 2014Q3

REPORT INFORMATION
  Report Type: Spontaneous
  Country: US (occurrence: None)
  Receive Date: 20140909
  Receipt Date: 20140909
  Transmission Date: 20150326
  Serious: Yes (Life-Threatening)
  Sender: FDA-Public Use
  Company Number: None

PATIENT
  Age: 35 Year
  Sex: Female
  Weight: 45.36 kg

DRUGS (3)
  1. CEFDINIR. [Suspect]
     Active Substance: CEFDINIR
     Indication: SINUSITIS
     Dosage: 1PILL TWICE DAILY TAKEN BY MOUTH
     Route: 048
     Dates: start: 20140827, end: 20140903
  2. CEFDINIR. [Suspect]
     Active Substance: CEFDINIR
     Indication: PHARYNGITIS STREPTOCOCCAL
     Dosage: 1PILL TWICE DAILY TAKEN BY MOUTH
     Route: 048
     Dates: start: 20140827, end: 20140903
  3. CEFDINIR. [Suspect]
     Active Substance: CEFDINIR
     Indication: EAR INFECTION
     Dosage: 1PILL TWICE DAILY TAKEN BY MOUTH
     Route: 048
     Dates: start: 20140827, end: 20140903

REACTIONS (1)
  - Clostridium difficile infection [None]

NARRATIVE: CASE EVENT DATE: 20140904
